FAERS Safety Report 7989033-6 (Version None)
Quarter: 2011Q4

REPORT INFORMATION
  Report Type: 
  Country: None (occurrence: None)
  Receive Date: 20111215
  Receipt Date: 20111215
  Transmission Date: 20120403
  Serious: No
  Sender: FDA-Public Use
  Company Number: None

PATIENT
  Age: 34 Year
  Sex: Female
  Weight: 84.5 kg

DRUGS (1)
  1. SUPRANE [Suspect]
     Indication: SURGERY
     Dosage: 7% INHALATION
     Route: 055
     Dates: start: 20111107

REACTIONS (1)
  - PREMATURE RECOVERY FROM ANAESTHESIA [None]
